FAERS Safety Report 9283628 (Version 3)
Quarter: 2013Q3

REPORT INFORMATION
  Report Type: Report from Study
  Country: BR (occurrence: BR)
  Receive Date: 20130510
  Receipt Date: 20130721
  Transmission Date: 20140515
  Serious: Yes (Other)
  Sender: FDA-Public Use
  Company Number: PHHY2012BR029892

PATIENT
  Sex: Female

DRUGS (4)
  1. DIOVAN AMLO [Suspect]
     Indication: BLOOD PRESSURE ABNORMAL
     Dosage: 1 DF (80 MG VALS, UNK AMLO), QD
     Route: 048
  2. DIOVAN AMLO [Suspect]
     Dosage: 1 DF (180 MG VALS, UNK AMLO), QD
  3. SAFFLOWER OIL [Concomitant]
     Indication: PROPHYLAXIS
     Dosage: 4 DF, DAILY
     Route: 048
  4. FORASEQ [Concomitant]
     Indication: ASTHMA
     Dosage: 1 DF (400 MG), QOD

REACTIONS (9)
  - Diabetes mellitus [Not Recovered/Not Resolved]
  - Glucose tolerance impaired [Not Recovered/Not Resolved]
  - Labyrinthitis [Not Recovered/Not Resolved]
  - Gastritis [Not Recovered/Not Resolved]
  - Blood pressure increased [Not Recovered/Not Resolved]
  - Blood cholesterol increased [Not Recovered/Not Resolved]
  - Stress [Not Recovered/Not Resolved]
  - Dizziness [Unknown]
  - Local swelling [Not Recovered/Not Resolved]
